FAERS Safety Report 7270013-3 (Version None)
Quarter: 2011Q1

REPORT INFORMATION
  Report Type: 
  Country: None (occurrence: None)
  Receive Date: 20110202
  Receipt Date: 20110121
  Transmission Date: 20110831
  Serious: Yes (Hospitalization, Other)
  Sender: FDA-Public Use
  Company Number: US-ACTELION-A-NJ2011-43772

PATIENT

DRUGS (2)
  1. TRACLEER [Suspect]
     Indication: PULMONARY ARTERIAL HYPERTENSION
     Dosage: UNK
     Route: 048
     Dates: start: 20090430
  2. REVATIO [Concomitant]

REACTIONS (7)
  - LUNG NEOPLASM MALIGNANT [None]
  - HEAD INJURY [None]
  - FALL [None]
  - BACK INJURY [None]
  - HYPERTENSION [None]
  - OXYGEN SATURATION ABNORMAL [None]
  - SYNCOPE [None]
